FAERS Safety Report 6540257-4 (Version None)
Quarter: 2010Q1

REPORT INFORMATION
  Report Type: 
  Country: None (occurrence: None)
  Receive Date: 20100115
  Receipt Date: 20090810
  Transmission Date: 20100710
  Serious: No
  Sender: FDA-Public Use
  Company Number: US-ABBOTT-09P-163-0588958-00

PATIENT
  Sex: Male
  Weight: 74.456 kg

DRUGS (5)
  1. ADVICOR [Suspect]
     Indication: BLOOD CHOLESTEROL INCREASED
     Dates: start: 20070101, end: 20090201
  2. ADVICOR [Suspect]
     Dosage: 1000/40
     Route: 048
     Dates: start: 20090301
  3. RAMIPRIL [Concomitant]
     Indication: HYPERTENSION
     Route: 048
  4. FISH OIL CAPSULE [Concomitant]
     Indication: DRUG USE FOR UNKNOWN INDICATION
  5. ASPIRIN [Concomitant]
     Indication: CARDIAC DISORDER
     Route: 048

REACTIONS (2)
  - FLUSHING [None]
  - INCORRECT DRUG ADMINISTRATION DURATION [None]
